FAERS Safety Report 17439991 (Version 2)
Quarter: 2020Q2

REPORT INFORMATION
  Report Type: Spontaneous
  Country: US (occurrence: US)
  Receive Date: 20200220
  Receipt Date: 20200407
  Transmission Date: 20200713
  Serious: No
  Sender: FDA-Public Use
  Company Number: US-PFIZER INC-2020074606

PATIENT
  Age: 60 Year
  Weight: 62 kg

DRUGS (6)
  1. NUZYRA [Suspect]
     Active Substance: OMADACYCLINE
     Dosage: 300 MG, 1X/DAY
     Route: 048
     Dates: start: 20190420
  2. LEVOTHYROXINE. [Concomitant]
     Active Substance: LEVOTHYROXINE
     Dosage: UNK
  3. MONTELUKAST [Concomitant]
     Active Substance: MONTELUKAST SODIUM
     Dosage: UNK
  4. NUZYRA [Suspect]
     Active Substance: OMADACYCLINE
     Dosage: 450 MG, 1X/DAY
     Route: 048
     Dates: start: 20190418, end: 20190419
  5. LINEZOLID. [Suspect]
     Active Substance: LINEZOLID
     Dosage: UNK
  6. AMIKACIN. [Suspect]
     Active Substance: AMIKACIN
     Dosage: UNK
     Route: 055

REACTIONS (1)
  - Tongue discolouration [Recovering/Resolving]

NARRATIVE: CASE EVENT DATE: 20190514
